FAERS Safety Report 5296511-X (Version None)
Quarter: 2007Q2

REPORT INFORMATION
  Report Type: 
  Country: None (occurrence: None)
  Receive Date: 20070413
  Receipt Date: 20070404
  Transmission Date: 20071010
  Serious: Yes (Other)
  Sender: FDA-Public Use
  Company Number: US-ROCHE-483507

PATIENT
  Age: 64 Year
  Sex: Female
  Weight: 85.7 kg

DRUGS (5)
  1. BONIVA [Suspect]
     Indication: OSTEOPENIA
     Dosage: TAKEN EVERY MONTH
     Route: 048
     Dates: start: 20061219
  2. FENTANYL TRANSDERMAL SYSTEM [Concomitant]
     Route: 062
  3. LIPITOR [Concomitant]
     Route: 048
  4. ZELNORM [Concomitant]
     Indication: IRRITABLE BOWEL SYNDROME
     Route: 048
  5. LEXAPRO [Concomitant]
     Indication: DEPRESSION
     Dosage: TAKEN DAILY
     Route: 048

REACTIONS (1)
  - COSTOCHONDRITIS [None]
